FAERS Safety Report 23877672 (Version 1)
Quarter: 2024Q2

REPORT INFORMATION
  Report Type: Spontaneous
  Country: US (occurrence: US)
  Receive Date: 20240521
  Receipt Date: 20240521
  Transmission Date: 20240716
  Serious: No
  Sender: FDA-Public Use
  Company Number: US-E2BLSMVVAL-SPO/USA/24/0007113

PATIENT
  Age: 18 Year
  Sex: Female

DRUGS (2)
  1. ACCUTANE [Suspect]
     Active Substance: ISOTRETINOIN
     Indication: Acne
     Route: 065
     Dates: start: 201908, end: 20240426
  2. ACCUTANE [Suspect]
     Active Substance: ISOTRETINOIN
     Dates: start: 20200101, end: 20240426

REACTIONS (5)
  - Headache [Unknown]
  - Myalgia [Unknown]
  - Visual impairment [Unknown]
  - Chest pain [Unknown]
  - Therapy interrupted [Unknown]
